FAERS Safety Report 5186456-8 (Version None)
Quarter: 2006Q4

REPORT INFORMATION
  Report Type: 
  Country: None (occurrence: None)
  Receive Date: 20061213
  Receipt Date: 20061127
  Transmission Date: 20070319
  Serious: Yes (Hospitalization)
  Sender: FDA-Public Use
  Company Number: 2006002225

PATIENT
  Age: 61 Year
  Sex: Male

DRUGS (4)
  1. ERLOTINIB(TABLET) [Suspect]
     Indication: NON-SMALL CELL LUNG CANCER
     Dosage: 150 MG (QD), ORAL
     Route: 048
     Dates: start: 20050405, end: 20050525
  2. DILTIAZEM [Concomitant]
  3. ASPIRIN [Concomitant]
  4. PHENYTOIN SODIUM [Concomitant]

REACTIONS (2)
  - CHOLESTASIS [None]
  - HEPATIC ENZYME INCREASED [None]
